FAERS Safety Report 14620705 (Version 2)
Quarter: 2018Q2

REPORT INFORMATION
  Report Type: Report from Study
  Country: None (occurrence: CA)
  Receive Date: 20180309
  Receipt Date: 20180402
  Transmission Date: 20180711
  Serious: Yes (Other)
  Sender: FDA-Public Use
  Company Number: CA-ABBVIE-18P-028-2279537-00

PATIENT
  Age: 71 Year
  Sex: Male
  Weight: 81.72 kg

DRUGS (5)
  1. COLCHICINE. [Concomitant]
     Active Substance: COLCHICINE
     Indication: PEYRONIE^S DISEASE
     Route: 048
     Dates: start: 201604
  2. MYRBETRIQ [Concomitant]
     Active Substance: MIRABEGRON
     Dosage: DAILY FOR 1 MONTH
     Route: 048
     Dates: start: 20170718
  3. HUMIRA [Suspect]
     Active Substance: ADALIMUMAB
     Indication: COLITIS ULCERATIVE
     Route: 058
     Dates: start: 20150512, end: 20150609
  4. MYRBETRIQ [Concomitant]
     Active Substance: MIRABEGRON
     Indication: BENIGN PROSTATIC HYPERPLASIA
     Route: 048
     Dates: start: 201509, end: 201603
  5. HUMIRA [Suspect]
     Active Substance: ADALIMUMAB
     Route: 065
     Dates: start: 20150616

REACTIONS (1)
  - Macular degeneration [Not Recovered/Not Resolved]

NARRATIVE: CASE EVENT DATE: 201801
